FAERS Safety Report 5320878-7 (Version None)
Quarter: 2007Q2

REPORT INFORMATION
  Report Type: 
  Country: None (occurrence: None)
  Receive Date: 20070504
  Receipt Date: 20070417
  Transmission Date: 20071010
  Serious: Yes (Hospitalization, Other)
  Sender: FDA-Public Use
  Company Number: 07042096

PATIENT
  Age: 46 Year
  Sex: Male

DRUGS (6)
  1. CARBAMAZEPINE [Suspect]
     Indication: AGITATION
     Dosage: 600MG, QD, ORAL
     Route: 048
  2. LITHIUM CARBONATE [Concomitant]
  3. PROMETHAZINE HYDROCHLORIDE TAB [Concomitant]
  4. FLUNITRAZEPAM (FLUNITRAZEPAM) [Concomitant]
  5. NIMETAZEPAM (NIMETAZEPAM) [Concomitant]
  6. OXATOMIDE [Concomitant]

REACTIONS (5)
  - BLOOD SODIUM INCREASED [None]
  - CEREBRAL DISORDER [None]
  - DIABETES INSIPIDUS [None]
  - DRUG WITHDRAWAL SYNDROME [None]
  - STUPOR [None]
